FAERS Safety Report 17063500 (Version 1)
Quarter: 2019Q4

REPORT INFORMATION
  Report Type: Report from Study
  Country: GB (occurrence: GB)
  Receive Date: 20191122
  Receipt Date: 20191122
  Transmission Date: 20200122
  Serious: Yes (Hospitalization, Other)
  Sender: FDA-Public Use
  Company Number: PHFR2015GB000981

PATIENT
  Age: 34 Year
  Sex: Female

DRUGS (1)
  1. GILENYA [Suspect]
     Active Substance: FINGOLIMOD HYDROCHLORIDE
     Indication: MULTIPLE SCLEROSIS
     Dosage: UNK, QD
     Route: 048
     Dates: start: 20140321, end: 20140822

REACTIONS (8)
  - Uhthoff^s phenomenon [Recovering/Resolving]
  - Road traffic accident [Unknown]
  - Multiple sclerosis relapse [Recovering/Resolving]
  - Sinusitis [Recovered/Resolved]
  - Diarrhoea [Unknown]
  - Sinusitis [Unknown]
  - Influenza like illness [Unknown]
  - Flushing [Unknown]

NARRATIVE: CASE EVENT DATE: 201409
